FAERS Safety Report 10061077 (Version 1)
Quarter: 2014Q2

REPORT INFORMATION
  Report Type: Spontaneous
  Country: US (occurrence: US)
  Receive Date: 20140405
  Receipt Date: 20140405
  Transmission Date: 20141212
  Serious: Yes (Hospitalization, Other)
  Sender: FDA-Public Use
  Company Number: US-MERCK-1403USA013354

PATIENT
  Age: 84 Year
  Sex: Female

DRUGS (1)
  1. ZOCOR [Suspect]
     Route: 048

REACTIONS (16)
  - Abortion spontaneous [Unknown]
  - Carotid endarterectomy [Unknown]
  - Spinal laminectomy [Unknown]
  - Hip arthroplasty [Unknown]
  - Nephrolithiasis [Unknown]
  - Cholecystectomy [Unknown]
  - Hip fracture [Unknown]
  - Pain [Unknown]
  - Hypertension [Unknown]
  - Hypercholesterolaemia [Unknown]
  - Osteoporosis [Unknown]
  - Osteoarthritis [Unknown]
  - Lumbar spinal stenosis [Unknown]
  - Oedema [Unknown]
  - Muscular weakness [Recovered/Resolved]
  - Asthenia [Unknown]
